FAERS Safety Report 15099947 (Version 2)
Quarter: 2018Q3

REPORT INFORMATION
  Report Type: Spontaneous
  Country: JP (occurrence: JP)
  Receive Date: 20180703
  Receipt Date: 20180720
  Transmission Date: 20181010
  Serious: Yes (Other)
  Sender: FDA-Public Use
  Company Number: JP-BRISTOL-MYERS SQUIBB COMPANY-BMS-2018-059624

PATIENT
  Age: 57 Year
  Sex: Male

DRUGS (1)
  1. KENACORT?A [Suspect]
     Active Substance: TRIAMCINOLONE
     Indication: GLAUCOMA
     Dosage: 20 MG, UNK
     Route: 065
     Dates: start: 200808

REACTIONS (2)
  - Visual field defect [Unknown]
  - Intraocular pressure increased [Unknown]
